FAERS Safety Report 5828076-5 (Version None)
Quarter: 2008Q3

REPORT INFORMATION
  Report Type: 
  Country: None (occurrence: None)
  Receive Date: 20080730
  Receipt Date: 20070719
  Transmission Date: 20090109
  Serious: No
  Sender: FDA-Public Use
  Company Number: A0665887A

PATIENT
  Age: 9 Week
  Sex: Male

DRUGS (1)
  1. ZANTAC [Suspect]
     Indication: GASTRIC DISORDER
     Dosage: 6ML TWICE PER DAY
     Route: 048

REACTIONS (3)
  - ACCIDENTAL OVERDOSE [None]
  - DRUG DISPENSING ERROR [None]
  - VOMITING [None]
